FAERS Safety Report 14238911 (Version 1)
Quarter: 2017Q4

REPORT INFORMATION
  Report Type: Spontaneous
  Country: US (occurrence: US)
  Receive Date: 20171130
  Receipt Date: 20171130
  Transmission Date: 20180321
  Serious: No
  Sender: FDA-Public Use
  Company Number: US-SA-2017SA162789

PATIENT
  Age: 78 Year
  Sex: Male
  Weight: 69.4 kg

DRUGS (2)
  1. SOLIQUA 100/33 [Suspect]
     Active Substance: INSULIN GLARGINE\LIXISENATIDE
     Dosage: DOSE:15 UNIT(S)
     Route: 058
     Dates: start: 20170814, end: 20170829
  2. SOLOSTAR [Suspect]
     Active Substance: DEVICE
     Dates: start: 20170814, end: 20170829

REACTIONS (2)
  - Injection site nodule [Recovered/Resolved]
  - Injection site swelling [Recovered/Resolved]

NARRATIVE: CASE EVENT DATE: 201708
